FAERS Safety Report 11112528 (Version 1)
Quarter: 2015Q2

REPORT INFORMATION
  Report Type: Spontaneous
  Country: AT (occurrence: AT)
  Receive Date: 20150514
  Receipt Date: 20150514
  Transmission Date: 20150821
  Serious: Yes (Hospitalization)
  Sender: FDA-Public Use
  Company Number: PHHY2015AT056295

PATIENT
  Age: 59 Year
  Sex: Female

DRUGS (7)
  1. XEFO [Concomitant]
     Active Substance: LORNOXICAM
     Indication: PRODUCT USED FOR UNKNOWN INDICATION
     Dosage: 8-16 MG, QD WHEN NEEDED
     Route: 065
  2. XGEVA [Concomitant]
     Active Substance: DENOSUMAB
     Indication: BREAST CANCER
     Dosage: 120 MG, QMO
     Route: 065
  3. AFINITOR [Suspect]
     Active Substance: EVEROLIMUS
     Indication: BREAST CANCER
     Dosage: 10 MG, QD
     Route: 065
  4. LETROZOLE. [Suspect]
     Active Substance: LETROZOLE
     Indication: BREAST CANCER
     Route: 065
  5. FENTANYL. [Concomitant]
     Active Substance: FENTANYL
     Indication: PRODUCT USED FOR UNKNOWN INDICATION
  6. DENOSUMAB [Concomitant]
     Active Substance: DENOSUMAB
     Indication: BREAST CANCER
     Dosage: 120 MG, QMO
     Route: 065
  7. EXEMESTANE. [Concomitant]
     Active Substance: EXEMESTANE
     Indication: BREAST CANCER
     Dosage: 120 MG, QMO
     Route: 065

REACTIONS (12)
  - Mechanical ileus [Recovered/Resolved]
  - Malignant neoplasm progression [Unknown]
  - Localised intraabdominal fluid collection [Unknown]
  - Gastric ulcer [Unknown]
  - Metastases to liver [Unknown]
  - Infection [Unknown]
  - Ileus paralytic [Recovered/Resolved]
  - Concomitant disease aggravated [Unknown]
  - Ascites [Unknown]
  - Melaena [Recovered/Resolved]
  - Pyrexia [Unknown]
  - Metastases to peritoneum [Unknown]

NARRATIVE: CASE EVENT DATE: 201304
